FAERS Safety Report 25478946 (Version 1)
Quarter: 2025Q2

REPORT INFORMATION
  Report Type: Spontaneous
  Country: JP (occurrence: JP)
  Receive Date: 20250625
  Receipt Date: 20250625
  Transmission Date: 20250717
  Serious: Yes (Other)
  Sender: EISAI
  Company Number: JP-Eisai-202501783_LEN-RCC_P_1

PATIENT
  Sex: Male

DRUGS (2)
  1. LENVIMA [Suspect]
     Active Substance: LENVATINIB
     Indication: Renal cell carcinoma
     Route: 048
     Dates: start: 20250411, end: 20250502
  2. KEYTRUDA [Suspect]
     Active Substance: PEMBROLIZUMAB
     Indication: Renal cell carcinoma
     Dates: start: 20250411, end: 20250502

REACTIONS (3)
  - Adrenal insufficiency [Not Recovered/Not Resolved]
  - Coronavirus infection [Recovered/Resolved with Sequelae]
  - Dysphonia [Recovering/Resolving]

NARRATIVE: CASE EVENT DATE: 20250501
